FAERS Safety Report 21719211 (Version 1)
Quarter: 2022Q4

REPORT INFORMATION
  Report Type: Spontaneous
  Country: PL (occurrence: PL)
  Receive Date: 20221213
  Receipt Date: 20221213
  Transmission Date: 20230112
  Serious: Yes (Other)
  Sender: FDA-Public Use
  Company Number: PL-ALKEM LABORATORIES LIMITED-PL-ALKEM-2022-13831

PATIENT
  Age: 17 Month
  Sex: Female

DRUGS (1)
  1. TACROLIMUS [Suspect]
     Active Substance: TACROLIMUS
     Indication: Product used for unknown indication
     Dosage: 14-16 NG/ML, DAILY DOSE AT DIAGNOSIS
     Route: 065

REACTIONS (1)
  - Hypertrophic cardiomyopathy [Recovered/Resolved]
